FAERS Safety Report 13562785 (Version 1)
Quarter: 2017Q2

REPORT INFORMATION
  Report Type: Spontaneous
  Country: US (occurrence: US)
  Receive Date: 20170518
  Receipt Date: 20170518
  Transmission Date: 20170830
  Serious: Yes (Disabling)
  Sender: FDA-Public Use
  Company Number: None

PATIENT
  Age: 60 Year
  Sex: Female
  Weight: 111.6 kg

DRUGS (19)
  1. OXYCODONE [Concomitant]
     Active Substance: OXYCODONE
  2. CETIRIZINE [Concomitant]
     Active Substance: CETIRIZINE HYDROCHLORIDE
  3. HUMALOG PEN [Concomitant]
     Active Substance: INSULIN LISPRO
  4. DIFLUCAN [Concomitant]
     Active Substance: FLUCONAZOLE
  5. LAMISIL [Concomitant]
     Active Substance: TERBINAFINE HYDROCHLORIDE
  6. TORSEMIDE. [Concomitant]
     Active Substance: TORSEMIDE
  7. BACLOFEN. [Concomitant]
     Active Substance: BACLOFEN
  8. ASA [Concomitant]
     Active Substance: ASPIRIN
  9. ZOHYDRO [Concomitant]
     Active Substance: HYDROCODONE BITARTRATE
  10. EYEHEALTH SUP [Concomitant]
  11. VITAMIN E [Concomitant]
     Active Substance: .ALPHA.-TOCOPHEROL
  12. PREDNISONE. [Concomitant]
     Active Substance: PREDNISONE
  13. VITAMIN A AND D [Concomitant]
     Active Substance: LANOLIN\PETROLATUM
  14. INVOKANA [Suspect]
     Active Substance: CANAGLIFLOZIN
     Indication: TYPE 2 DIABETES MELLITUS
     Dosage: ?          QUANTITY:1 TABLET(S);?
     Route: 048
     Dates: start: 20150613, end: 20150912
  15. LEVOTHROID [Concomitant]
     Active Substance: LEVOTHYROXINE SODIUM
  16. TOUJEO PEN [Concomitant]
  17. BACTRIM [Concomitant]
     Active Substance: SULFAMETHOXAZOLE\TRIMETHOPRIM
  18. KLOR-CON [Concomitant]
     Active Substance: POTASSIUM CHLORIDE
  19. VITAMIN D [Concomitant]
     Active Substance: CHOLECALCIFEROL

REACTIONS (4)
  - Visual acuity reduced [None]
  - Vitreous floaters [None]
  - Photopsia [None]
  - Retinal detachment [None]

NARRATIVE: CASE EVENT DATE: 20150905
